FAERS Safety Report 14132347 (Version 4)
Quarter: 2018Q1

REPORT INFORMATION
  Report Type: Spontaneous
  Country: ES (occurrence: ES)
  Receive Date: 20171026
  Receipt Date: 20180226
  Transmission Date: 20180508
  Serious: Yes (Other)
  Sender: FDA-Public Use
  Company Number: ES-JNJFOC-20171019326

PATIENT
  Age: 66 Year
  Sex: Female

DRUGS (1)
  1. XEPLION [Suspect]
     Active Substance: PALIPERIDONE PALMITATE
     Indication: NERVOUSNESS
     Route: 030
     Dates: start: 201703

REACTIONS (7)
  - Gastrointestinal injury [Unknown]
  - Emotional distress [Unknown]
  - Malaise [Unknown]
  - Helplessness [Unknown]
  - Suspected counterfeit product [Unknown]
  - Liver injury [Unknown]
  - Headache [Unknown]

NARRATIVE: CASE EVENT DATE: 2017
